FAERS Safety Report 7275108-6 (Version None)
Quarter: 2011Q1

REPORT INFORMATION
  Report Type: 
  Country: None (occurrence: None)
  Receive Date: 20110204
  Receipt Date: 20110124
  Transmission Date: 20110831
  Serious: Yes (Other)
  Sender: FDA-Public Use
  Company Number: PHHY2011US05827

PATIENT
  Age: 22 Year
  Sex: Female
  Weight: 50.794 kg

DRUGS (1)
  1. TASIGNA [Suspect]
     Indication: LEUKAEMIA
     Dosage: 400 MG, BID
     Route: 048
     Dates: start: 20100910

REACTIONS (3)
  - DEAFNESS [None]
  - EAR DISCOMFORT [None]
  - HEADACHE [None]
